FAERS Safety Report 8884281 (Version 2)
Quarter: 2014Q2

REPORT INFORMATION
  Report Type: Spontaneous
  Country: US (occurrence: US)
  Receive Date: 20121102
  Receipt Date: 20140617
  Transmission Date: 20141212
  Serious: No
  Sender: FDA-Public Use
  Company Number: US-ASTRAZENECA-2012SE19849

PATIENT
  Age: 56 Year
  Sex: Male
  Weight: 120.2 kg

DRUGS (5)
  1. CRESTOR [Suspect]
     Indication: BLOOD CHOLESTEROL INCREASED
     Route: 048
     Dates: start: 200703
  2. MOTRIN [Concomitant]
  3. TRICOR [Concomitant]
     Indication: BLOOD CHOLESTEROL ABNORMAL
  4. METFORMIN [Concomitant]
     Indication: DIABETES MELLITUS
  5. ASPIRIN [Concomitant]
     Indication: ANTICOAGULANT THERAPY

REACTIONS (5)
  - Hypertension [Unknown]
  - Chest pain [Unknown]
  - Diabetes mellitus [Unknown]
  - Blood cholesterol increased [Unknown]
  - Drug dose omission [Unknown]
